FAERS Safety Report 8313477-6 (Version None)
Quarter: 2012Q2

REPORT INFORMATION
  Report Type: 
  Country: None (occurrence: None)
  Receive Date: 20120426
  Receipt Date: 20120420
  Transmission Date: 20120825
  Serious: Yes (Other)
  Sender: FDA-Public Use
  Company Number: JP-JNJFOC-20120410300

PATIENT
  Sex: Female
  Weight: 65 kg

DRUGS (7)
  1. ISOSORBIDE DINITRATE [Concomitant]
     Route: 061
  2. GOLIMUMAB [Suspect]
     Indication: RHEUMATOID ARTHRITIS
     Route: 058
     Dates: start: 20120215
  3. WARFARIN SODIUM [Concomitant]
     Route: 048
  4. DIGOXIN [Concomitant]
  5. SULFASALAZINE [Concomitant]
     Indication: RHEUMATOID ARTHRITIS
     Dates: start: 20001115
  6. GOLIMUMAB [Suspect]
     Route: 058
     Dates: start: 20120118
  7. TACROLIMUS [Suspect]
     Indication: RHEUMATOID ARTHRITIS
     Dates: start: 20090609

REACTIONS (2)
  - BRAIN NATRIURETIC PEPTIDE INCREASED [None]
  - ACUTE SINUSITIS [None]
